FAERS Safety Report 8959103 (Version 1)
Quarter: 2012Q4

REPORT INFORMATION
  Report Type: 
  Country: US (occurrence: US)
  Receive Date: 20121211
  Receipt Date: 20121211
  Transmission Date: 20130627
  Serious: No
  Sender: FDA-Public Use
  Company Number: US-VERTEX PHARMACEUTICAL INC.-2012-020475

PATIENT
  Sex: Male
  Weight: 95 kg

DRUGS (8)
  1. VX-950 (TELAPREVIR) [Suspect]
     Indication: HEPATITIS C
     Route: 048
  2. PEGASYS [Concomitant]
     Indication: HEPATITIS C
     Dosage: 180 ?g, UNK
  3. RIBAVIRIN [Concomitant]
     Indication: HEPATITIS C
  4. TRICOR                             /00090101/ [Concomitant]
     Dosage: 145 mg, UNK
  5. TRAZODONE [Concomitant]
     Dosage: 50 mg, UNK
  6. MULTIVITAMIN                       /00097801/ [Concomitant]
  7. VITAMIN B COMPLEX [Concomitant]
  8. VITAMIN D /00107901/ [Concomitant]
     Dosage: 1000 ut, UNK

REACTIONS (1)
  - Red blood cell count decreased [Unknown]
